FAERS Safety Report 8169485-1 (Version None)
Quarter: 2012Q1

REPORT INFORMATION
  Report Type: 
  Country: None (occurrence: None)
  Receive Date: 20120228
  Receipt Date: 20120220
  Transmission Date: 20120608
  Serious: Yes (Death)
  Sender: FDA-Public Use
  Company Number: JP-SANOFI-AVENTIS-2011SA084889

PATIENT
  Age: 66 Year
  Sex: Male

DRUGS (4)
  1. LANTUS [Suspect]
     Indication: TYPE 2 DIABETES MELLITUS
     Route: 065
     Dates: start: 20090123, end: 20111101
  2. METFORMIN HCL [Concomitant]
     Dates: start: 20010713
  3. AMARYL [Concomitant]
     Dates: start: 20000707
  4. HUMALOG [Concomitant]
     Dates: start: 20071024

REACTIONS (1)
  - LUNG NEOPLASM MALIGNANT [None]
